FAERS Safety Report 16752888 (Version 3)
Quarter: 2019Q3

REPORT INFORMATION
  Report Type: Report from Study
  Country: None (occurrence: FR)
  Receive Date: 20190829
  Receipt Date: 20190920
  Transmission Date: 20191005
  Serious: Yes (Other)
  Sender: FDA-Public Use
  Company Number: FR-ABBVIE-19K-056-2903285-00

PATIENT
  Age: 77 Year
  Sex: Male

DRUGS (1)
  1. DUODOPA [Suspect]
     Active Substance: CARBIDOPA\LEVODOPA
     Indication: PARKINSON^S DISEASE
     Route: 050
     Dates: start: 20180224, end: 201909

REACTIONS (6)
  - Cardiac disorder [Unknown]
  - Tachycardia [Unknown]
  - Confusional state [Unknown]
  - Gastric disorder [Unknown]
  - Device occlusion [Unknown]
  - Post procedural complication [Unknown]
